FAERS Safety Report 13877026 (Version 1)
Quarter: 2017Q3

REPORT INFORMATION
  Report Type: Report from Study
  Country: MX (occurrence: MX)
  Receive Date: 20170817
  Receipt Date: 20170817
  Transmission Date: 20171127
  Serious: Yes (Death)
  Sender: FDA-Public Use
  Company Number: MX-UCBSA-2017031058

PATIENT
  Sex: Female

DRUGS (5)
  1. NOOTROPIL [Suspect]
     Active Substance: PIRACETAM
     Indication: BLOOD PRESSURE ABNORMAL
     Dosage: UNK
  2. LOSARTAN. [Concomitant]
     Active Substance: LOSARTAN
     Indication: BLOOD PRESSURE ABNORMAL
     Dosage: UNK
  3. ROTIGOTINE [Suspect]
     Active Substance: ROTIGOTINE
     Indication: UNEVALUABLE THERAPY
     Dosage: 4 MG, ONCE DAILY (QD)
     Route: 062
     Dates: start: 2016, end: 20170209
  4. ROTIGOTINE [Suspect]
     Active Substance: ROTIGOTINE
     Indication: OFF LABEL USE
  5. CAPTOPRIL. [Concomitant]
     Active Substance: CAPTOPRIL
     Indication: BLOOD PRESSURE ABNORMAL
     Dosage: UNK

REACTIONS (3)
  - Systemic infection [Fatal]
  - Off label use [Unknown]
  - Salmonellosis [Fatal]

NARRATIVE: CASE EVENT DATE: 2016
